FAERS Safety Report 18932334 (Version 3)
Quarter: 2021Q2

REPORT INFORMATION
  Report Type: Spontaneous
  Country: JP (occurrence: JP)
  Receive Date: 20210223
  Receipt Date: 20210416
  Transmission Date: 20210717
  Serious: Yes (Life-Threatening, Other)
  Sender: FDA-Public Use
  Company Number: JP-B.I. PHARMACEUTICALS,INC./RIDGEFIELD-2021-BI-083414

PATIENT

DRUGS (7)
  1. RABEPRAZOLE NA [Concomitant]
     Active Substance: RABEPRAZOLE SODIUM
     Indication: INTERSTITIAL LUNG DISEASE
     Route: 048
     Dates: start: 2013
  2. ALFACALCIDOL [Concomitant]
     Active Substance: ALFACALCIDOL
     Indication: INTERSTITIAL LUNG DISEASE
     Route: 048
     Dates: start: 2013
  3. EZETIMIBE. [Concomitant]
     Active Substance: EZETIMIBE
     Indication: INTERSTITIAL LUNG DISEASE
     Route: 048
     Dates: start: 2013
  4. OFEV [Suspect]
     Active Substance: NINTEDANIB
     Indication: INTERSTITIAL LUNG DISEASE
     Route: 048
     Dates: start: 20201109, end: 20201222
  5. PREDNISOLONE. [Concomitant]
     Active Substance: PREDNISOLONE
     Indication: INTERSTITIAL LUNG DISEASE
     Route: 048
     Dates: start: 2013
  6. CILNIDIPINE [Concomitant]
     Active Substance: CILNIDIPINE
     Indication: HYPERTENSION
     Route: 048
     Dates: start: 2013
  7. CICLOSPORIN [Concomitant]
     Active Substance: CYCLOSPORINE
     Indication: INTERSTITIAL LUNG DISEASE
     Route: 048
     Dates: start: 2013

REACTIONS (5)
  - Nephritis [Recovered/Resolved]
  - Blood pressure increased [Recovered/Resolved]
  - Nephrotic syndrome [Recovered/Resolved]
  - Interstitial lung disease [Unknown]
  - Renal impairment [Recovered/Resolved]

NARRATIVE: CASE EVENT DATE: 20201209
